FAERS Safety Report 8975663 (Version 1)
Quarter: 2012Q4

REPORT INFORMATION
  Report Type: 
  Country: US (occurrence: US)
  Receive Date: 20121219
  Receipt Date: 20121219
  Transmission Date: 20130627
  Serious: No
  Sender: FDA-Public Use
  Company Number: US-AMGEN-USASP2012071766

PATIENT
  Sex: Female

DRUGS (3)
  1. PROLIA [Suspect]
     Indication: OSTEOPOROSIS
     Dosage: UNK UNK, q6mo
     Dates: start: 201110, end: 20121023
  2. VICODIN [Concomitant]
     Indication: PAIN
     Dosage: UNK
  3. OXYCONTIN [Concomitant]
     Indication: PAIN
     Dosage: UNK

REACTIONS (2)
  - Back pain [Unknown]
  - Pain in extremity [Unknown]
